FAERS Safety Report 17654606 (Version 1)
Quarter: 2020Q2

REPORT INFORMATION
  Report Type: Spontaneous
  Country: GB (occurrence: GB)
  Receive Date: 20200410
  Receipt Date: 20200410
  Transmission Date: 20200713
  Serious: Yes (Hospitalization)
  Sender: FDA-Public Use
  Company Number: GB-TEVA-2020-GB-1221504

PATIENT
  Age: 57 Year
  Sex: Male

DRUGS (2)
  1. SALBUTAMOL [Concomitant]
     Active Substance: ALBUTEROL
     Dosage: ONE OR TWO INHALATIONS
     Route: 055
  2. NAPROXEN. [Suspect]
     Active Substance: NAPROXEN
     Dosage: 1000 MG
     Route: 048
     Dates: end: 20200110

REACTIONS (1)
  - Eosinophil count increased [Recovering/Resolving]

NARRATIVE: CASE EVENT DATE: 20200110
